FAERS Safety Report 4691420-9 (Version None)
Quarter: 2005Q2

REPORT INFORMATION
  Report Type: 
  Country: None (occurrence: None)
  Receive Date: 20050615
  Receipt Date: 20050603
  Transmission Date: 20051028
  Serious: Yes (Hospitalization, Other)
  Sender: FDA-Public Use
  Company Number: KII-2005-0016843

PATIENT
  Age: 21 Year
  Sex: Male

DRUGS (2)
  1. OXYCONTIN [Suspect]
     Dosage: SEE TEXT, ORAL
     Route: 048
  2. AMMONIA (AMMONIA) [Suspect]
     Dosage: TOPICAL
     Route: 061

REACTIONS (7)
  - CAUSTIC INJURY [None]
  - ERYTHEMA [None]
  - FALL [None]
  - INCORRECT ROUTE OF DRUG ADMINISTRATION [None]
  - PAIN [None]
  - POLYSUBSTANCE ABUSE [None]
  - REFUSAL OF TREATMENT BY PATIENT [None]
